FAERS Safety Report 7295188-1 (Version None)
Quarter: 2011Q1

REPORT INFORMATION
  Report Type: 
  Country: None (occurrence: None)
  Receive Date: 20110216
  Receipt Date: 20101119
  Transmission Date: 20110831
  Serious: No
  Sender: FDA-Public Use
  Company Number: A0894258A

PATIENT
  Age: 47 Year
  Sex: Male

DRUGS (3)
  1. LASIX [Concomitant]
  2. NEURONTIN [Concomitant]
  3. VOTRIENT [Suspect]
     Indication: RENAL CANCER METASTATIC
     Dosage: 400MG PER DAY
     Route: 048
     Dates: start: 20101101

REACTIONS (3)
  - NAUSEA [None]
  - HYPERTENSION [None]
  - DYSPEPSIA [None]
